FAERS Safety Report 5219630-2 (Version None)
Quarter: 2007Q1

REPORT INFORMATION
  Report Type: 
  Country: None (occurrence: None)
  Receive Date: 20070125
  Receipt Date: 20070116
  Transmission Date: 20070707
  Serious: Yes (Hospitalization)
  Sender: FDA-Public Use
  Company Number: FR-PFIZER INC-2005168588

PATIENT
  Age: 98 Year
  Sex: Female

DRUGS (7)
  1. ATORVASTATIN CALCIUM [Suspect]
     Indication: ILL-DEFINED DISORDER
     Dosage: TEXT:UNKNOWN
     Route: 048
     Dates: start: 20050718, end: 20050808
  2. INIPOMP [Suspect]
     Indication: ILL-DEFINED DISORDER
     Dosage: DAILY DOSE:40MG
     Route: 048
     Dates: start: 20050709, end: 20050808
  3. CACIT D3 [Suspect]
     Indication: ILL-DEFINED DISORDER
     Dosage: TEXT:1000 MG / 800 IU-FREQ:UNKNOWN
     Route: 048
     Dates: start: 20050729, end: 20050808
  4. TIORFAN [Suspect]
     Indication: ILL-DEFINED DISORDER
     Dosage: TEXT:UNKNOWN-FREQ:UNKNOWN
     Route: 048
     Dates: start: 20050726, end: 20050805
  5. SPECIAFOLDINE [Suspect]
     Indication: ILL-DEFINED DISORDER
     Dosage: TEXT:UNKNOWN-FREQ:UNKNOWN
     Route: 048
     Dates: start: 20050718, end: 20050808
  6. NICARDIPINE HCL [Concomitant]
     Route: 048
  7. FORLAX [Concomitant]
     Route: 048
     Dates: end: 20050808

REACTIONS (4)
  - FALL [None]
  - IRON DEFICIENCY ANAEMIA [None]
  - MICROCYTIC ANAEMIA [None]
  - TOXIC SKIN ERUPTION [None]
